FAERS Safety Report 4605096-X (Version None)
Quarter: 2005Q1

REPORT INFORMATION
  Report Type: 
  Country: None (occurrence: None)
  Receive Date: 20050217
  Receipt Date: 20041206
  Transmission Date: 20050727
  Serious: No
  Sender: FDA-Public Use
  Company Number: S04-USA-07692-01

PATIENT
  Age: 75 Year
  Sex: Male

DRUGS (3)
  1. NAMENDA [Suspect]
     Indication: DEMENTIA ALZHEIMER'S TYPE
     Dosage: 5 MG QD; PO
     Route: 048
     Dates: start: 20041203
  2. ARICEPT [Concomitant]
  3. ANTIHYPERTENSIVE MEDICATION (NOS) [Concomitant]

REACTIONS (1)
  - EPISTAXIS [None]
